FAERS Safety Report 26180283 (Version 1)
Quarter: 2025Q4

REPORT INFORMATION
  Report Type: Report from Study
  Country: CA (occurrence: CA)
  Receive Date: 20251219
  Receipt Date: 20251219
  Transmission Date: 20260117
  Serious: Yes (Other)
  Sender: PFIZER
  Company Number: CA-PFIZER INC-202500245943

PATIENT
  Age: 56 Year
  Sex: Male
  Weight: 127 kg

DRUGS (3)
  1. IXIFI [Suspect]
     Active Substance: INFLIXIMAB-QBTX
     Indication: Colitis ulcerative
     Dosage: 900 MG, EVERY 8 WEEKS
     Route: 042
     Dates: start: 20250630
  2. IXIFI [Suspect]
     Active Substance: INFLIXIMAB-QBTX
     Dosage: 900 MG, EVERY 8 WEEKS
     Route: 042
     Dates: start: 20251020
  3. IXIFI [Suspect]
     Active Substance: INFLIXIMAB-QBTX
     Dosage: 900 MG, EVERY 8 WEEKS
     Route: 042
     Dates: start: 20251215

REACTIONS (2)
  - Ocular hypertension [Recovered/Resolved]
  - Optic atrophy [Recovered/Resolved]

NARRATIVE: CASE EVENT DATE: 20250101
